FAERS Safety Report 16412485 (Version 1)
Quarter: 2019Q2

REPORT INFORMATION
  Report Type: Spontaneous
  Country: AU (occurrence: AU)
  Receive Date: 20190610
  Receipt Date: 20190610
  Transmission Date: 20190711
  Serious: Yes (Disabling)
  Sender: FDA-Public Use
  Company Number: AU-BAXTER-2019BAX011298

PATIENT
  Sex: Male

DRUGS (1)
  1. ARTISS FROZEN [Suspect]
     Active Substance: FIBRINOGEN HUMAN\THROMBIN HUMAN
     Indication: TISSUE SEALING
     Dosage: AT SURGERY
     Route: 065
     Dates: start: 20190208

REACTIONS (4)
  - Paraesthesia [Not Recovered/Not Resolved]
  - Discomfort [Not Recovered/Not Resolved]
  - Visual impairment [Not Recovered/Not Resolved]
  - Vision blurred [Not Recovered/Not Resolved]

NARRATIVE: CASE EVENT DATE: 2019
